FAERS Safety Report 22393464 (Version 1)
Quarter: 2023Q2

REPORT INFORMATION
  Report Type: Spontaneous
  Country: US (occurrence: None)
  Receive Date: 20230531
  Receipt Date: 20230531
  Transmission Date: 20230722
  Serious: Yes (Hospitalization)
  Sender: FDA-Public Use
  Company Number: None

PATIENT
  Age: 55 Year
  Sex: Male
  Weight: 27.69 kg

DRUGS (16)
  1. DURVALUMAB [Suspect]
     Active Substance: DURVALUMAB
     Dosage: OTHER FREQUENCY : EVERY 28 DAYS;?
     Route: 042
     Dates: start: 20230523
  2. ACETAMINOPHEN [Concomitant]
  3. ALBUTEROL HFA [Concomitant]
  4. AMLODIPINE [Concomitant]
  5. BACLOFEN [Concomitant]
  6. BENZONATATE [Concomitant]
  7. Calcium Carbonate-Vitamin D (CALCIUM-VITAMIN D) [Concomitant]
  8. famotidine (PEPCID) [Concomitant]
  9. GABAPENTIN [Concomitant]
  10. LEVOTHYROXINE [Concomitant]
  11. LORATADINE [Concomitant]
     Active Substance: LORATADINE
  12. OXYCODONE [Concomitant]
  13. PANTOPRAZOLE [Concomitant]
  14. ROSUVASTATIN [Concomitant]
  15. sertraline (ZOLOFT) [Concomitant]
  16. TRAZODONE [Concomitant]

REACTIONS (10)
  - Eye swelling [None]
  - Eye pain [None]
  - Pyrexia [None]
  - Erythema of eyelid [None]
  - Exophthalmos [None]
  - Eye pain [None]
  - Periorbital inflammation [None]
  - Localised oedema [None]
  - Unevaluable event [None]
  - Cellulitis [None]

NARRATIVE: CASE EVENT DATE: 20230527
